FAERS Safety Report 5301390-8 (Version None)
Quarter: 2007Q2

REPORT INFORMATION
  Report Type: 
  Country: None (occurrence: None)
  Receive Date: 20070418
  Receipt Date: 20070410
  Transmission Date: 20071010
  Serious: Yes (Other)
  Sender: FDA-Public Use
  Company Number: US-MERCK-0703USA03646

PATIENT
  Age: 27 Year
  Sex: Male
  Weight: 109 kg

DRUGS (8)
  1. JANUVIA [Suspect]
     Indication: DIABETES MELLITUS NON-INSULIN-DEPENDENT
     Route: 048
     Dates: start: 20070217, end: 20070307
  2. JANUVIA [Suspect]
     Route: 048
     Dates: start: 20070313
  3. JANUVIA [Suspect]
     Indication: BLOOD GLUCOSE INCREASED
     Route: 048
     Dates: start: 20070217, end: 20070307
  4. JANUVIA [Suspect]
     Route: 048
     Dates: start: 20070313
  5. NAPROXEN [Concomitant]
     Indication: PAIN
     Route: 048
     Dates: start: 20050101
  6. GEODON [Concomitant]
     Indication: SCHIZOPHRENIA, PARANOID TYPE
     Route: 048
     Dates: start: 20050101
  7. SEROQUEL [Concomitant]
     Indication: SCHIZOPHRENIA, PARANOID TYPE
     Route: 048
  8. LEVOTHYROXINE SODIUM [Concomitant]
     Indication: HYPOTHYROIDISM
     Route: 048
     Dates: start: 20030217

REACTIONS (6)
  - ASTHENIA [None]
  - CHEST PAIN [None]
  - DEHYDRATION [None]
  - HYPOGLYCAEMIA [None]
  - NERVOUSNESS [None]
  - TREMOR [None]
